FAERS Safety Report 7420661-2 (Version None)
Quarter: 2011Q2

REPORT INFORMATION
  Report Type: 
  Country: None (occurrence: None)
  Receive Date: 20110418
  Receipt Date: 20110404
  Transmission Date: 20111010
  Serious: Yes (Death, Other)
  Sender: FDA-Public Use
  Company Number: US-CELGENEUS-163-21880-10110229

PATIENT
  Sex: Female

DRUGS (28)
  1. D5W WITH 3 AMPS SODIUM BICARBONATE [Concomitant]
     Dosage: 100ML/HR
     Route: 065
  2. MUCINEX [Concomitant]
     Route: 065
  3. LEVOPHED [Concomitant]
     Route: 051
  4. MORPHINE SULFATE [Concomitant]
     Route: 065
  5. REVLIMID [Suspect]
     Dosage: 15 MILLIGRAM
     Route: 048
     Dates: start: 20100225, end: 20100101
  6. LYRICA [Concomitant]
     Dosage: 75 MILLIGRAM
     Route: 048
     Dates: start: 20100407, end: 20101028
  7. FLAGYL [Concomitant]
     Route: 065
  8. REVLIMID [Suspect]
     Dosage: 25 MILLIGRAM
     Route: 048
     Dates: start: 20081031, end: 20090501
  9. EXELON [Concomitant]
     Route: 062
  10. DIPRIVAN [Concomitant]
     Route: 065
  11. REVLIMID [Suspect]
     Dosage: 10 MILLIGRAM
     Route: 048
     Dates: end: 20101007
  12. PRESSORS [Concomitant]
     Route: 065
  13. MAXIPIME [Concomitant]
     Route: 065
  14. ATIVAN [Concomitant]
     Route: 065
  15. COMBIVENT [Concomitant]
     Route: 065
  16. VITAMIN K TAB [Concomitant]
     Route: 065
  17. ZITHROMAX [Concomitant]
     Route: 065
  18. HALDOL [Concomitant]
     Route: 065
  19. COMPAZINE [Concomitant]
     Route: 065
  20. PERCOCET [Concomitant]
     Route: 065
  21. NORMAL SALINE [Concomitant]
     Dosage: 100ML/HR
     Route: 051
  22. CELEXA [Concomitant]
     Dosage: 10 MILLIGRAM
     Route: 048
  23. ULTRAM [Concomitant]
     Dosage: 50 MILLIGRAM
     Route: 065
  24. DEXAMETHASONE [Concomitant]
     Dosage: 20 MILLIGRAM
     Route: 048
     Dates: start: 20100929, end: 20101028
  25. REVLIMID [Suspect]
     Dosage: 15 MILLIGRAM
     Route: 048
     Dates: start: 20090501
  26. MIRTAZAPINE [Concomitant]
     Indication: ANTIDEPRESSANT THERAPY
     Dosage: 30 MILLIGRAM
     Route: 048
     Dates: start: 20100407, end: 20101028
  27. POTASSIUM CHLORIDE [Concomitant]
     Dosage: 10 MILLIEQUIVALENTS
     Route: 065
  28. ZOFRAN [Concomitant]
     Route: 065

REACTIONS (7)
  - DEHYDRATION [None]
  - VOMITING [None]
  - DIARRHOEA HAEMORRHAGIC [None]
  - ASTHENIA [None]
  - CONVULSION [None]
  - SEPSIS [None]
  - RENAL FAILURE ACUTE [None]
